FAERS Safety Report 10523325 (Version 2)
Quarter: 2014Q4

REPORT INFORMATION
  Report Type: Report from Study
  Country: ES (occurrence: ES)
  Receive Date: 20141016
  Receipt Date: 20141202
  Transmission Date: 20150528
  Serious: Yes (Death, Other)
  Sender: FDA-Public Use
  Company Number: ES-GILEAD-2014-0118462

PATIENT
  Age: 67 Year
  Sex: Male
  Weight: 63 kg

DRUGS (9)
  1. DEFLAZACORT [Concomitant]
     Active Substance: DEFLAZACORT
     Dosage: 15 MG, QD
  2. FUROSEMIDE. [Concomitant]
     Active Substance: FUROSEMIDE
     Indication: ASCITES
  3. ESPIRONOLACTONA [Concomitant]
     Active Substance: SPIRONOLACTONE
     Indication: ASCITES
  4. SOFOSBUVIR [Suspect]
     Active Substance: SOFOSBUVIR
     Indication: HEPATITIS C
     Dosage: 400 MG, QD
     Route: 048
     Dates: start: 20140916
  5. DACLATASVIR [Concomitant]
     Active Substance: DACLATASVIR
     Indication: HEPATITIS C
  6. EVEROLIMUS [Concomitant]
     Active Substance: EVEROLIMUS
     Dosage: 0.74 MG, BID
  7. TACROLIMUS. [Concomitant]
     Active Substance: TACROLIMUS
     Indication: IMMUNOSUPPRESSION
     Dosage: 1.5 MG, QD
  8. FITOMENADIONA [Concomitant]
     Indication: HEPATIC FAILURE
  9. LACTULOSA [Concomitant]
     Indication: ENCEPHALOPATHY

REACTIONS (1)
  - Death [Fatal]

NARRATIVE: CASE EVENT DATE: 20141003
